FAERS Safety Report 5484890-X (Version None)
Quarter: 2007Q4

REPORT INFORMATION
  Report Type: 
  Country: None (occurrence: None)
  Receive Date: 20071010
  Receipt Date: 20071002
  Transmission Date: 20080405
  Serious: Yes (Hospitalization)
  Sender: FDA-Public Use
  Company Number: 2007SP012156

PATIENT
  Age: 59 Year
  Sex: Female
  Weight: 54 kg

DRUGS (6)
  1. TEMOZOLOMIDE [Suspect]
     Indication: METASTATIC MALIGNANT MELANOMA
     Dosage: 185 MG; 112 MG/M2;
     Dates: start: 20070112, end: 20070607
  2. TEMOZOLOMIDE                (TEMOZOLOMIDE) [Suspect]
  3. TEMOZOLOMIDE                (TEMOZOLOMIDE) [Suspect]
  4. PANTOPRAZOLE SODIUM [Concomitant]
  5. NORMOFUNDIN [Concomitant]
  6. FRAXIPARIN [Concomitant]

REACTIONS (1)
  - PANCREATITIS [None]
